FAERS Safety Report 25520663 (Version 1)
Quarter: 2025Q3

REPORT INFORMATION
  Report Type: Spontaneous
  Country: LB (occurrence: LB)
  Receive Date: 20250705
  Receipt Date: 20250705
  Transmission Date: 20251020
  Serious: Yes (Other)
  Sender: VKT PHARMA PRIVATE LIMITED
  Company Number: LB-VKT-000664

PATIENT
  Age: 3 Year
  Sex: Female

DRUGS (2)
  1. LEVETIRACETAM [Suspect]
     Active Substance: LEVETIRACETAM
     Indication: Epilepsy with myoclonic-atonic seizures
     Dosage: LEVETIRACETAM AT A DOSE OF 250MG (31 MG/KG/DAY)
     Route: 065
  2. LEVETIRACETAM [Suspect]
     Active Substance: LEVETIRACETAM
     Indication: Epilepsy with myoclonic-atonic seizures
     Dosage: 47 MG/KG/ DAY
     Route: 065

REACTIONS (2)
  - Paradoxical drug reaction [Recovered/Resolved]
  - Epilepsy with myoclonic-atonic seizures [Recovered/Resolved]
